FAERS Safety Report 5126208-8 (Version None)
Quarter: 2006Q3

REPORT INFORMATION
  Report Type: 
  Country: None (occurrence: None)
  Receive Date: 20060824
  Receipt Date: 20060425
  Transmission Date: 20061208
  Serious: Yes (Hospitalization)
  Sender: FDA-Public Use
  Company Number: WAES0604USA03898

PATIENT
  Age: 44 Year
  Sex: Male
  Weight: 136.0791 kg

DRUGS (4)
  1. VYTORIN [Suspect]
     Indication: DRUG USE FOR UNKNOWN INDICATION
     Dosage: PO
     Route: 048
  2. NEOMYCIN [Suspect]
     Indication: EAR INFECTION
  3. NEOMYCIN [Suspect]
     Indication: FUNGAL INFECTION
  4. POLYMYXIN [Concomitant]

REACTIONS (2)
  - EAR HAEMORRHAGE [None]
  - STEVENS-JOHNSON SYNDROME [None]
